FAERS Safety Report 8180991-6 (Version None)
Quarter: 2012Q1

REPORT INFORMATION
  Report Type: 
  Country: None (occurrence: None)
  Receive Date: 20120301
  Receipt Date: 20120301
  Transmission Date: 20120608
  Serious: No
  Sender: FDA-Public Use
  Company Number: None

PATIENT
  Sex: Female
  Weight: 94.3482 kg

DRUGS (1)
  1. COUMADIN [Suspect]
     Dosage: 4MG AS DIRECTED ORAL
     Route: 048
     Dates: start: 20120112, end: 20120212

REACTIONS (2)
  - PRODUCT SUBSTITUTION ISSUE [None]
  - INTERNATIONAL NORMALISED RATIO FLUCTUATION [None]
